FAERS Safety Report 11291672 (Version 6)
Quarter: 2016Q1

REPORT INFORMATION
  Report Type: Spontaneous
  Country: US (occurrence: US)
  Receive Date: 20150722
  Receipt Date: 20160111
  Transmission Date: 20160525
  Serious: Yes (Hospitalization)
  Sender: FDA-Public Use
  Company Number: US-PFIZER INC-2015240448

PATIENT
  Age: 5 Year
  Sex: Male
  Weight: 18 kg

DRUGS (5)
  1. CYPROHEPTADINE. [Concomitant]
     Active Substance: CYPROHEPTADINE
     Indication: APPETITE DISORDER
     Dosage: 4 MG, 2X/DAY
     Dates: start: 201506
  2. METHYLPHENIDATE. [Concomitant]
     Active Substance: METHYLPHENIDATE
     Dosage: UNK (INCREASE 5 TO 10 MG)
  3. QUILLIVANT XR [Suspect]
     Active Substance: METHYLPHENIDATE HYDROCHLORIDE
     Indication: ATTENTION DEFICIT/HYPERACTIVITY DISORDER
     Dosage: 5 MG, 1X/DAY
     Dates: start: 201401
  4. CLONIDINE. [Concomitant]
     Active Substance: CLONIDINE
     Indication: SLEEP DISORDER
     Dosage: 0.1 MG, 1X/DAY (PM
     Dates: start: 201409
  5. CLONIDINE. [Concomitant]
     Active Substance: CLONIDINE
     Dosage: INCREASED  FROM  ?  TABLET TO 1 TABLET.
     Dates: start: 201512

REACTIONS (5)
  - Drug interaction [Unknown]
  - Product use issue [Not Recovered/Not Resolved]
  - Decreased appetite [Not Recovered/Not Resolved]
  - Feeling abnormal [Not Recovered/Not Resolved]
  - Drug ineffective [Unknown]

NARRATIVE: CASE EVENT DATE: 201401
